FAERS Safety Report 13001292 (Version 5)
Quarter: 2017Q3

REPORT INFORMATION
  Report Type: Report from Study
  Country: IL (occurrence: IL)
  Receive Date: 20161206
  Receipt Date: 20170904
  Transmission Date: 20171127
  Serious: Yes (Hospitalization)
  Sender: FDA-Public Use
  Company Number: PHHO2015IL005688

PATIENT
  Age: 14 Year
  Sex: Female
  Weight: 39.5 kg

DRUGS (6)
  1. CALCIUM [Concomitant]
     Active Substance: CALCIUM
     Indication: OSTEOPOROSIS PROPHYLAXIS
     Dosage: 600 MG, Q12H
     Route: 048
     Dates: start: 20150321
  2. FOLIC ACID. [Concomitant]
     Active Substance: FOLIC ACID
     Indication: GASTRITIS
     Dosage: 5 MG, QW
     Route: 048
     Dates: start: 20170127
  3. ACZ885 [Suspect]
     Active Substance: CANAKINUMAB
     Indication: STILL^S DISEASE
     Dosage: 4 MG/KG Q4S
     Route: 058
     Dates: start: 20150302
  4. METHOTREXATE. [Suspect]
     Active Substance: METHOTREXATE
     Indication: GASTRITIS
     Dosage: 10 MG, QW
     Route: 048
     Dates: start: 20170125
  5. VITAMIN D [Concomitant]
     Active Substance: CHOLECALCIFEROL
     Indication: PRODUCT USED FOR UNKNOWN INDICATION
     Dosage: 1000 U, QD
     Route: 048
     Dates: start: 20150302
  6. PREDNISONE. [Suspect]
     Active Substance: PREDNISONE
     Indication: STILL^S DISEASE
     Dosage: 12.5 MG
     Route: 048
     Dates: start: 20170319

REACTIONS (3)
  - Gastroenteritis [Recovered/Resolved]
  - Atypical pneumonia [Recovered/Resolved]
  - Juvenile idiopathic arthritis [Recovering/Resolving]

NARRATIVE: CASE EVENT DATE: 20150327
